FAERS Safety Report 4521325-5 (Version None)
Quarter: 2004Q4

REPORT INFORMATION
  Report Type: 
  Country: None (occurrence: None)
  Receive Date: 20041208
  Receipt Date: 20041130
  Transmission Date: 20050328
  Serious: Yes (Hospitalization)
  Sender: FDA-Public Use
  Company Number: PHRM2004FR03496

PATIENT
  Age: 79 Year
  Sex: Male
  Weight: 89 kg

DRUGS (6)
  1. PERMIXON [Suspect]
     Indication: MICTURITION DISORDER
     Dosage: 160 MG/DAY
     Route: 048
     Dates: end: 20041004
  2. TAHOR [Suspect]
     Indication: DYSLIPIDAEMIA
     Dosage: 10 MG, QD
     Route: 048
     Dates: end: 20041004
  3. NISISCO [Suspect]
     Indication: ESSENTIAL HYPERTENSION
     Dosage: 1 DF, QD
     Route: 048
     Dates: end: 20041004
  4. DIAMICRON [Suspect]
     Indication: DIABETES MELLITUS NON-INSULIN-DEPENDENT
     Route: 048
     Dates: start: 20000101
  5. VENTOLIN [Suspect]
     Indication: BRONCHITIS CHRONIC
     Dates: end: 20041004
  6. BECOTIDE [Suspect]
     Indication: BRONCHITIS CHRONIC
     Dates: end: 20041004

REACTIONS (6)
  - ATELECTASIS [None]
  - CONDITION AGGRAVATED [None]
  - HYPERCAPNIC ENCEPHALOPATHY [None]
  - PLEURAL EFFUSION [None]
  - PLEUROPERICARDITIS [None]
  - VIRAL INFECTION [None]
